FAERS Safety Report 16169577 (Version 1)
Quarter: 2019Q2

REPORT INFORMATION
  Report Type: Spontaneous
  Country: JP (occurrence: JP)
  Receive Date: 20190408
  Receipt Date: 20190408
  Transmission Date: 20190711
  Serious: Yes (Hospitalization)
  Sender: FDA-Public Use
  Company Number: JP-PFIZER INC-2019134532

PATIENT
  Age: 69 Year
  Sex: Male

DRUGS (1)
  1. SUTENT [Suspect]
     Active Substance: SUNITINIB MALATE
     Indication: METASTATIC RENAL CELL CARCINOMA
     Dosage: 37.5 MG/DAY, CYCLIC (USE MEDICATION FOR 2 WEEKS AND STOP ADMINISTRATION FOR ONE WEEK)
     Dates: start: 20190308

REACTIONS (5)
  - Lipase increased [Unknown]
  - Platelet count decreased [Recovering/Resolving]
  - C-reactive protein increased [Unknown]
  - Amylase increased [Unknown]
  - White blood cell count decreased [Unknown]

NARRATIVE: CASE EVENT DATE: 2019
